FAERS Safety Report 7949645-2 (Version None)
Quarter: 2011Q4

REPORT INFORMATION
  Report Type: 
  Country: None (occurrence: None)
  Receive Date: 20111130
  Receipt Date: 20111124
  Transmission Date: 20120403
  Serious: Yes (Life-Threatening)
  Sender: FDA-Public Use
  Company Number: JP-CELGENEUS-087-50794-11113712

PATIENT
  Age: 77 Year
  Sex: Male
  Weight: 67 kg

DRUGS (9)
  1. VIDAZA [Suspect]
     Dosage: 75 MILLIGRAM/SQ. METER
     Route: 041
     Dates: start: 20110812, end: 20110818
  2. DORIPENEM MONOHYDRATE [Concomitant]
     Route: 065
     Dates: start: 20110709, end: 20110714
  3. VIDAZA [Suspect]
     Indication: MYELODYSPLASTIC SYNDROME
     Dosage: 75 MILLIGRAM/SQ. METER
     Route: 041
     Dates: start: 20110707, end: 20110713
  4. OMEPRAZOLE [Concomitant]
     Route: 065
  5. MAGMITT [Concomitant]
     Route: 065
     Dates: start: 20110713
  6. PROMAC [Concomitant]
     Route: 065
  7. ISODINE GARGLE [Concomitant]
     Route: 065
  8. FULMETA [Concomitant]
     Route: 065
     Dates: start: 20110808
  9. BORRAZA-G [Concomitant]
     Route: 065
     Dates: start: 20110817

REACTIONS (1)
  - NEUTROPHIL COUNT DECREASED [None]
